FAERS Safety Report 9541862 (Version 2)
Quarter: 2013Q3

REPORT INFORMATION
  Report Type: Report from Study
  Country: VN (occurrence: VN)
  Receive Date: 20130923
  Receipt Date: 20130925
  Transmission Date: 20140515
  Serious: Yes (Death)
  Sender: FDA-Public Use
  Company Number: PHHY2013VN105022

PATIENT
  Age: 50 Year
  Sex: Male
  Weight: 54 kg

DRUGS (2)
  1. GLIVEC [Suspect]
     Indication: CHRONIC MYELOID LEUKAEMIA
     Dosage: 400 MG, QD
     Route: 048
     Dates: start: 20121024, end: 201301
  2. GLIVEC [Suspect]
     Dosage: 800 MG, QD
     Route: 048
     Dates: start: 201301, end: 20130319

REACTIONS (5)
  - Haemorrhage [Fatal]
  - Infection [Fatal]
  - Chronic myeloid leukaemia transformation [Fatal]
  - White blood cell count increased [Fatal]
  - Blast cell count increased [Fatal]
